FAERS Safety Report 8866060 (Version 1)
Quarter: 2012Q4

REPORT INFORMATION
  Report Type: 
  Country: MA (occurrence: MA)
  Receive Date: 20121025
  Receipt Date: 20121025
  Transmission Date: 20130627
  Serious: Yes (Other)
  Sender: FDA-Public Use
  Company Number: MA-ROCHE-1148155

PATIENT
  Age: 63 Year
  Sex: Male

DRUGS (5)
  1. PEGASYS [Suspect]
     Indication: HEPATITIS C
     Route: 058
  2. PEGASYS [Suspect]
     Dosage: for 2 months
     Route: 065
  3. PEGASYS [Suspect]
     Dosage: for one month
     Route: 065
  4. PEGASYS [Suspect]
     Dosage: for the two remaining months
     Route: 065
  5. RIBAVIRIN [Suspect]
     Indication: HEPATITIS C
     Dosage: divided doses
     Route: 048

REACTIONS (1)
  - Demyelinating polyneuropathy [Recovered/Resolved]
